FAERS Safety Report 10083731 (Version 3)
Quarter: 2014Q2

REPORT INFORMATION
  Report Type: Report from Study
  Country: CA (occurrence: CA)
  Receive Date: 20140417
  Receipt Date: 20140421
  Transmission Date: 20141212
  Serious: No
  Sender: FDA-Public Use
  Company Number: CA-ROCHE-1380382

PATIENT
  Sex: Female

DRUGS (7)
  1. RITUXAN [Suspect]
     Indication: RHEUMATOID ARTHRITIS
     Dosage: DAY 1 AND 15 LAST RITUXIMAB INFUSION ON 25/APR/2013
     Route: 042
     Dates: start: 20120112
  2. RITUXAN [Suspect]
     Route: 042
     Dates: start: 20130425
  3. RITUXAN [Suspect]
     Route: 042
     Dates: start: 20140411
  4. DIPHENHYDRAMINE HCL [Concomitant]
     Indication: PREMEDICATION
     Route: 048
     Dates: start: 20120112
  5. METHYLPREDNISOLONE [Concomitant]
     Indication: PREMEDICATION
     Route: 042
     Dates: start: 20120112
  6. ACETAMINOPHEN [Concomitant]
     Indication: PREMEDICATION
     Route: 048
     Dates: start: 20120112
  7. HUMIRA [Concomitant]
     Dosage: TOLD TO STOP BY MD 2 WEEKS PRIOR TO RITUXAN
     Route: 065

REACTIONS (1)
  - Eczema [Not Recovered/Not Resolved]
